FAERS Safety Report 15964719 (Version 2)
Quarter: 2019Q1

REPORT INFORMATION
  Report Type: Report from Study
  Country: DE (occurrence: DE)
  Receive Date: 20190215
  Receipt Date: 20190226
  Transmission Date: 20190418
  Serious: Yes (Hospitalization)
  Sender: FDA-Public Use
  Company Number: DE-ROCHE-2263965

PATIENT
  Age: 52 Year
  Sex: Male
  Weight: 86.3 kg

DRUGS (4)
  1. TAZOBAC [Concomitant]
     Active Substance: PIPERACILLIN SODIUM\TAZOBACTAM SODIUM
     Route: 065
     Dates: start: 20190212, end: 20190218
  2. KLACID [Concomitant]
     Active Substance: CLARITHROMYCIN
     Route: 048
     Dates: start: 20190212, end: 20190212
  3. ACETYLCYSTEINE. [Concomitant]
     Active Substance: ACETYLCYSTEINE
     Route: 065
     Dates: start: 20190218, end: 20190219
  4. OBINUTUZUMAB. [Suspect]
     Active Substance: OBINUTUZUMAB
     Indication: CHRONIC LYMPHOCYTIC LEUKAEMIA
     Dosage: LAST DOSE PRIOR TO SAE ON 25/JAN/2019?CYCLE 1: DAY 1: 100MG, DAY 1(OR2): 900MG, DAY 8 AND 15: 1000MG
     Route: 042
     Dates: start: 20190111

REACTIONS (1)
  - Atypical pneumonia [Recovered/Resolved]

NARRATIVE: CASE EVENT DATE: 20190211
